FAERS Safety Report 6193667-1 (Version None)
Quarter: 2009Q2

REPORT INFORMATION
  Report Type: 
  Country: None (occurrence: None)
  Receive Date: 20090518
  Receipt Date: 20090507
  Transmission Date: 20091009
  Serious: Yes (Other)
  Sender: FDA-Public Use
  Company Number: DE-PFIZER INC-2009165083

PATIENT
  Age: 37 Year

DRUGS (1)
  1. CLINDAMYCIN PHOSPHATE [Suspect]
     Dosage: UNKNOWN
     Route: 048

REACTIONS (3)
  - DYSPEPSIA [None]
  - DYSPHONIA [None]
  - OESOPHAGEAL DISCOMFORT [None]
